FAERS Safety Report 8011117-7 (Version None)
Quarter: 2011Q4

REPORT INFORMATION
  Report Type: 
  Country: None (occurrence: None)
  Receive Date: 20111228
  Receipt Date: 20111222
  Transmission Date: 20120403
  Serious: Yes (Hospitalization)
  Sender: FDA-Public Use
  Company Number: CA-ROCHE-GNE307757

PATIENT
  Sex: Female
  Weight: 98.105 kg

DRUGS (10)
  1. SYMBICORT [Concomitant]
     Indication: PRODUCT USED FOR UNKNOWN INDICATION
  2. VENTOLIN [Concomitant]
     Indication: PRODUCT USED FOR UNKNOWN INDICATION
  3. FLONASE [Concomitant]
     Indication: PRODUCT USED FOR UNKNOWN INDICATION
  4. CODEINE [Concomitant]
  5. XOLAIR [Suspect]
     Dates: start: 20100414
  6. AVELOX [Concomitant]
  7. XOLAIR [Suspect]
     Indication: ASTHMA
     Dosage: 375 MG, Q2W
     Route: 058
     Dates: start: 20100401
  8. ALVESCO [Concomitant]
     Indication: PRODUCT USED FOR UNKNOWN INDICATION
  9. PREDNISONE TAB [Concomitant]
  10. COPHYLAC [Concomitant]

REACTIONS (10)
  - VERTIGO [None]
  - NAUSEA [None]
  - BRONCHITIS [None]
  - ASTHMA [None]
  - UPPER RESPIRATORY TRACT CONGESTION [None]
  - DIZZINESS [None]
  - ASTHENIA [None]
  - COUGH [None]
  - ABDOMINAL DISCOMFORT [None]
  - SINUSITIS [None]
